FAERS Safety Report 13874904 (Version 1)
Quarter: 2017Q3

REPORT INFORMATION
  Report Type: Spontaneous
  Country: US (occurrence: US)
  Receive Date: 20170816
  Receipt Date: 20170816
  Transmission Date: 20171127
  Serious: No
  Sender: FDA-Public Use
  Company Number: US-ROCHE-1293001

PATIENT
  Age: 87 Year
  Sex: Female

DRUGS (3)
  1. BETADINE [Suspect]
     Active Substance: POVIDONE-IODINE
     Indication: PRODUCT USED FOR UNKNOWN INDICATION
     Route: 065
  2. HYDROCHLOROTHIAZIDE. [Concomitant]
     Active Substance: HYDROCHLOROTHIAZIDE
     Indication: BLOOD PRESSURE MEASUREMENT
     Dosage: AS REQUIRED, WHEN HER BLOOD PRESSURE RISES OVER 145
     Route: 048
  3. LUCENTIS [Suspect]
     Active Substance: RANIBIZUMAB
     Indication: NEOVASCULAR AGE-RELATED MACULAR DEGENERATION
     Dosage: LEFT EYE, FREQUENCY AT START OF LUCENTIS
     Route: 065
     Dates: start: 2011

REACTIONS (5)
  - Foreign body sensation in eyes [Unknown]
  - Pain [Recovered/Resolved]
  - Eye irritation [Recovered/Resolved]
  - Eye pain [Unknown]
  - Corneal thickening [Unknown]

NARRATIVE: CASE EVENT DATE: 201307
